FAERS Safety Report 10916505 (Version 1)
Quarter: 2015Q1

REPORT INFORMATION
  Report Type: Spontaneous
  Country: US (occurrence: None)
  Receive Date: 20150312
  Receipt Date: 20150312
  Transmission Date: 20150721
  Serious: Yes (Other)
  Sender: FDA-Public Use
  Company Number: None

PATIENT
  Age: 34 Year
  Sex: Female
  Weight: 97.98 kg

DRUGS (2)
  1. SAVELLA [Suspect]
     Active Substance: MILNACIPRAN HYDROCHLORIDE
     Indication: FIBROMYALGIA
     Dosage: TAKEN BY MOUTH
     Route: 048
     Dates: start: 20140901, end: 20150310
  2. MULTIVITAMIN [Concomitant]
     Active Substance: VITAMINS

REACTIONS (5)
  - Feeling hot [None]
  - Panic attack [None]
  - Nervousness [None]
  - Phobia [None]
  - Suffocation feeling [None]

NARRATIVE: CASE EVENT DATE: 20150310
